FAERS Safety Report 15260436 (Version 2)
Quarter: 2018Q3

REPORT INFORMATION
  Report Type: Report from Study
  Country: GB (occurrence: GB)
  Receive Date: 20180809
  Receipt Date: 20180920
  Transmission Date: 20181010
  Serious: Yes (Other)
  Sender: FDA-Public Use
  Company Number: GB-JNJFOC-20180802327

PATIENT
  Age: 81 Year
  Sex: Female

DRUGS (2)
  1. LANSOPRAZOLE. [Concomitant]
     Active Substance: LANSOPRAZOLE
     Route: 065
  2. STELARA [Suspect]
     Active Substance: USTEKINUMAB
     Indication: PSORIASIS
     Route: 058
     Dates: start: 20161101

REACTIONS (4)
  - Carpal tunnel syndrome [Unknown]
  - Psoriasis [Recovering/Resolving]
  - Psoriatic arthropathy [Recovering/Resolving]
  - Inappropriate schedule of drug administration [Unknown]

NARRATIVE: CASE EVENT DATE: 2018
